FAERS Safety Report 6441571-3 (Version None)
Quarter: 2009Q4

REPORT INFORMATION
  Report Type: 
  Country: None (occurrence: None)
  Receive Date: 20091116
  Receipt Date: 20091104
  Transmission Date: 20100525
  Serious: Yes (Other)
  Sender: FDA-Public Use
  Company Number: JP-ASTRAZENECA-2009SE24761

PATIENT
  Age: 31 Year
  Sex: Female

DRUGS (6)
  1. FOSCAVIR [Suspect]
     Indication: CYTOMEGALOVIRUS TEST POSITIVE
     Route: 041
     Dates: start: 20091015
  2. NU-LOTAN [Concomitant]
     Route: 048
  3. BAKTAR [Concomitant]
     Route: 048
  4. DEPAKENE [Concomitant]
     Route: 048
  5. ASPIRIN [Concomitant]
     Route: 048
  6. DENOSINE [Concomitant]
     Indication: CYTOMEGALOVIRUS TEST POSITIVE

REACTIONS (1)
  - NEUTROPHIL COUNT DECREASED [None]
